FAERS Safety Report 21779168 (Version 1)
Quarter: 2022Q4

REPORT INFORMATION
  Report Type: Spontaneous
  Country: US (occurrence: US)
  Receive Date: 20221226
  Receipt Date: 20221226
  Transmission Date: 20230113
  Serious: Yes (Other)
  Sender: FDA-Public Use
  Company Number: US-NEUROCRINE BIOSCIENCES INC.-2022NBI09420

PATIENT

DRUGS (2)
  1. INGREZZA [Suspect]
     Active Substance: VALBENAZINE
     Indication: Tic
     Dosage: 80 MILLIGRAM, QD
     Route: 065
  2. INGREZZA [Suspect]
     Active Substance: VALBENAZINE
     Dosage: 40 MILLIGRAM, QD
     Route: 065
     Dates: start: 2020

REACTIONS (5)
  - Suicidal ideation [Recovered/Resolved]
  - Depression [Recovered/Resolved]
  - Sedation [Unknown]
  - Off label use [Unknown]
  - Drug ineffective for unapproved indication [Unknown]
